FAERS Safety Report 6527025-4 (Version None)
Quarter: 2010Q1

REPORT INFORMATION
  Report Type: 
  Country: None (occurrence: None)
  Receive Date: 20100105
  Receipt Date: 20091229
  Transmission Date: 20100710
  Serious: Yes (Hospitalization, Other)
  Sender: FDA-Public Use
  Company Number: CN-NOVOPROD-300677

PATIENT
  Age: 77 Year
  Sex: Female

DRUGS (4)
  1. NOVOLIN R [Suspect]
     Indication: TYPE 2 DIABETES MELLITUS
     Dosage: 15 IU, TID
     Route: 058
  2. NOVOLIN R [Suspect]
     Dosage: 15 IU, TID
     Route: 058
  3. NOVOLIN N [Suspect]
     Indication: TYPE 2 DIABETES MELLITUS
     Dosage: SLIDING SCALE  WITHIN 10 - 15 IU DAILY
  4. NOVOLIN N [Suspect]
     Dosage: SLIDING SCALE  WITHIN 10 - 15 IU DAILY

REACTIONS (5)
  - BLOOD GLUCOSE INCREASED [None]
  - DEVICE MALFUNCTION [None]
  - DIABETIC HYPERGLYCAEMIC COMA [None]
  - PRODUCT QUALITY ISSUE [None]
  - URINARY TRACT INFECTION [None]
